FAERS Safety Report 16206879 (Version 1)
Quarter: 2019Q2

REPORT INFORMATION
  Report Type: Spontaneous
  Country: DZ (occurrence: DZ)
  Receive Date: 20190417
  Receipt Date: 20190417
  Transmission Date: 20190711
  Serious: Yes (Death)
  Sender: FDA-Public Use
  Company Number: DZ-ACCORD-123061

PATIENT
  Age: 57 Year
  Sex: Male
  Weight: 80 kg

DRUGS (3)
  1. CISPLATIN. [Suspect]
     Active Substance: CISPLATIN
     Indication: PRODUCT USED FOR UNKNOWN INDICATION
     Route: 042
     Dates: start: 20180813
  2. DOCETAXEL. [Suspect]
     Active Substance: DOCETAXEL
     Indication: PRODUCT USED FOR UNKNOWN INDICATION
     Route: 042
  3. CAPEMAX INTAS (CAPECITABINE) [Suspect]
     Active Substance: CAPECITABINE
     Indication: NEOPLASM MALIGNANT
     Dosage: DOSE: 2000 (UNIT UNSPECIFIED)
     Route: 048
     Dates: start: 20180813

REACTIONS (4)
  - Diarrhoea [Fatal]
  - Pyrexia [Fatal]
  - Vomiting [Fatal]
  - Bicytopenia [Fatal]

NARRATIVE: CASE EVENT DATE: 20180826
